FAERS Safety Report 11131590 (Version 1)
Quarter: 2015Q2

REPORT INFORMATION
  Report Type: Spontaneous
  Country: FR (occurrence: FR)
  Receive Date: 20150522
  Receipt Date: 20150522
  Transmission Date: 20150821
  Serious: Yes (Other)
  Sender: FDA-Public Use
  Company Number: FR-AMGEN-FRASP2015049017

PATIENT
  Age: 77 Year
  Sex: Female

DRUGS (3)
  1. PROLIA [Suspect]
     Active Substance: DENOSUMAB
     Indication: PRODUCT USED FOR UNKNOWN INDICATION
     Dosage: UNK
     Route: 065
     Dates: start: 201407
  2. CACIT D3 [Concomitant]
     Active Substance: CALCIUM\CHOLECALCIFEROL
  3. FOSAMAX [Concomitant]
     Active Substance: ALENDRONATE SODIUM

REACTIONS (1)
  - Femur fracture [Unknown]

NARRATIVE: CASE EVENT DATE: 201502
